FAERS Safety Report 7007527-7 (Version None)
Quarter: 2010Q3

REPORT INFORMATION
  Report Type: 
  Country: None (occurrence: None)
  Receive Date: 20100915
  Receipt Date: 20100908
  Transmission Date: 20110219
  Serious: Yes (Hospitalization)
  Sender: FDA-Public Use
  Company Number: 2010SP047865

PATIENT
  Sex: Female

DRUGS (1)
  1. CELESTONE [Suspect]
     Indication: PREMATURE BABY
     Dosage: TRPL
     Route: 064
     Dates: start: 20100215, end: 20100215

REACTIONS (2)
  - FOETAL HYPOKINESIA [None]
  - MATERNAL DRUGS AFFECTING FOETUS [None]
